FAERS Safety Report 12906809 (Version 4)
Quarter: 2017Q1

REPORT INFORMATION
  Report Type: Spontaneous
  Country: JP (occurrence: JP)
  Receive Date: 20161103
  Receipt Date: 20170313
  Transmission Date: 20170428
  Serious: Yes (Life-Threatening, Other)
  Sender: FDA-Public Use
  Company Number: JP-BAYER-2016-206954

PATIENT
  Age: 68 Year
  Sex: Male
  Weight: 77 kg

DRUGS (2)
  1. NEXAVAR [Suspect]
     Active Substance: SORAFENIB
     Indication: HEPATOCELLULAR CARCINOMA
     Dosage: DAILY DOSE 800 MG
     Route: 048
     Dates: start: 20141126, end: 20160705
  2. HIRUDOID [Concomitant]
     Active Substance: GLYCOSAMINOGLYCANS
     Indication: DRUG TOXICITY PROPHYLAXIS
     Dosage: UNK UNK, QS
     Route: 061
     Dates: start: 20141126, end: 20160705

REACTIONS (6)
  - Tumour embolism [Not Recovered/Not Resolved]
  - Metastases to lung [Recovering/Resolving]
  - Dysgeusia [Recovered/Resolved]
  - Metastases to adrenals [Not Recovered/Not Resolved]
  - Palmar-plantar erythrodysaesthesia syndrome [Recovered/Resolved]
  - Hepatocellular carcinoma [None]

NARRATIVE: CASE EVENT DATE: 20141224
